FAERS Safety Report 19408995 (Version 1)
Quarter: 2021Q2

REPORT INFORMATION
  Report Type: Spontaneous
  Country: CN (occurrence: CN)
  Receive Date: 20210613
  Receipt Date: 20210613
  Transmission Date: 20210717
  Serious: Yes (Hospitalization, Disabling)
  Sender: FDA-Public Use
  Company Number: CN-JNJFOC-20210626064

PATIENT
  Age: 33 Year
  Sex: Male
  Weight: 75 kg

DRUGS (2)
  1. TRAMADOL HYDROCHLORIDE. [Suspect]
     Active Substance: TRAMADOL HYDROCHLORIDE
     Indication: ANALGESIC THERAPY
     Dosage: 100 MILLIGRAM, EVERY 12 HRS
     Route: 030
     Dates: start: 20210514, end: 20210526
  2. ALPROSTADIL. [Suspect]
     Active Substance: ALPROSTADIL
     Indication: COLLATERAL CIRCULATION
     Dosage: 10 MICROGRAM, 1/DAY
     Route: 042
     Dates: start: 20210514, end: 20210526

REACTIONS (4)
  - Drug-induced liver injury [Recovering/Resolving]
  - Swelling [Unknown]
  - Infection [Unknown]
  - Pneumonia [Unknown]

NARRATIVE: CASE EVENT DATE: 20210523
